FAERS Safety Report 5060715-1 (Version None)
Quarter: 2006Q3

REPORT INFORMATION
  Report Type: 
  Country: None (occurrence: None)
  Receive Date: 20060719
  Receipt Date: 20060719
  Transmission Date: 20061208
  Serious: Yes (Other)
  Sender: FDA-Public Use
  Company Number: None

PATIENT
  Sex: Male
  Weight: 80.7403 kg

DRUGS (7)
  1. CYPHER EXUDING STENTS [Suspect]
     Indication: CORONARY ARTERY OCCLUSION
     Dates: start: 20060705, end: 20060710
  2. LIPITOR [Concomitant]
  3. TOPROL-XL [Concomitant]
  4. ASPRIN [Concomitant]
  5. PLAVIX [Concomitant]
  6. LISINOPRIL [Concomitant]
  7. MOBIC [Concomitant]

REACTIONS (2)
  - PRURITUS [None]
  - RASH GENERALISED [None]
